FAERS Safety Report 7988720-3 (Version None)
Quarter: 2011Q4

REPORT INFORMATION
  Report Type: 
  Country: None (occurrence: None)
  Receive Date: 20111219
  Receipt Date: 20111213
  Transmission Date: 20120403
  Serious: Yes (Life-Threatening, Hospitalization)
  Sender: FDA-Public Use
  Company Number: IT-BRISTOL-MYERS SQUIBB COMPANY-16196339

PATIENT
  Age: 12 Year
  Sex: Female

DRUGS (1)
  1. SPRYCEL [Suspect]
     Indication: CHRONIC MYELOID LEUKAEMIA
     Dosage: RECEIVED TO 12SEP2011
     Dates: start: 20090713

REACTIONS (4)
  - NEPHROTIC SYNDROME [None]
  - CONVULSION [None]
  - FLUID RETENTION [None]
  - HYPERTENSION [None]
